FAERS Safety Report 18487650 (Version 4)
Quarter: 2020Q4

REPORT INFORMATION
  Report Type: Report from Study
  Country: CN (occurrence: CN)
  Receive Date: 20201111
  Receipt Date: 20201216
  Transmission Date: 20210114
  Serious: Yes (Hospitalization)
  Sender: FDA-Public Use
  Company Number: CN-GILEAD-2020-0503255

PATIENT
  Sex: Male
  Weight: 80 kg

DRUGS (2)
  1. TENOFOVIR DISOPROXIL FUMARATE/LAMIVUDINE/EFAVIRENZ [Concomitant]
     Indication: HIV INFECTION
     Dates: start: 202005, end: 20201013
  2. ELVITEGRAVIR/COBICISTAT/EMTRICITABINE/TENOFOVIR ALAFENAMIDE [Suspect]
     Active Substance: COBICISTAT\ELVITEGRAVIR\EMTRICITABINE\TENOFOVIR
     Indication: HIV INFECTION
     Dosage: 1 DOSAGE FORM, QD
     Route: 048
     Dates: start: 20201014, end: 20201027

REACTIONS (2)
  - Drug eruption [Recovered/Resolved]
  - Pneumonia [Recovered/Resolved]

NARRATIVE: CASE EVENT DATE: 20201027
